FAERS Safety Report 14354649 (Version 2)
Quarter: 2018Q1

REPORT INFORMATION
  Report Type: Report from Study
  Country: US (occurrence: US)
  Receive Date: 20180105
  Receipt Date: 20180108
  Transmission Date: 20180509
  Serious: Yes (Hospitalization)
  Sender: FDA-Public Use
  Company Number: US-TAIHO ONCOLOGY INC-EU-2017-01555

PATIENT
  Age: 79 Year
  Sex: Male
  Weight: 61.74 kg

DRUGS (1)
  1. LONSURF [Suspect]
     Active Substance: TIPIRACIL HYDROCHLORIDE\TRIFLURIDINE
     Indication: COLORECTAL CANCER METASTATIC
     Dosage: RECEIVED LONSURF FROM 27 NOV 2017 TO 01 DEC 2017. OFF ON THE 02 AND 03 DEC 2017 REECEIVED AGAIN FROM
     Route: 048
     Dates: start: 20171127, end: 20171206

REACTIONS (5)
  - Weight decreased [Unknown]
  - Decreased immune responsiveness [Unknown]
  - Pain [Recovered/Resolved]
  - Herpes zoster [Unknown]
  - White blood cell count decreased [Unknown]

NARRATIVE: CASE EVENT DATE: 201712
